FAERS Safety Report 8326676-4 (Version None)
Quarter: 2012Q2

REPORT INFORMATION
  Report Type: 
  Country: None (occurrence: None)
  Receive Date: 20120501
  Receipt Date: 20120427
  Transmission Date: 20120825
  Serious: Yes (Hospitalization, Other)
  Sender: FDA-Public Use
  Company Number: CA-ABBOTT-12P-028-0888390-00

PATIENT
  Sex: Male

DRUGS (5)
  1. REMICADE [Suspect]
     Indication: COLITIS ULCERATIVE
     Route: 058
     Dates: start: 20110501, end: 20111001
  2. PURINETHOL [Concomitant]
     Indication: CROHN'S DISEASE
     Route: 048
     Dates: start: 20110501
  3. HUMIRA [Suspect]
     Indication: COLITIS ULCERATIVE
     Route: 058
     Dates: start: 20111130, end: 20111228
  4. MESALAMINE [Concomitant]
     Indication: CROHN'S DISEASE
     Route: 048
     Dates: start: 20050101
  5. CRESTOR [Concomitant]
     Indication: BLOOD CHOLESTEROL INCREASED
     Dates: start: 20070101

REACTIONS (5)
  - WEIGHT DECREASED [None]
  - INTESTINAL RESECTION [None]
  - DYSPNOEA [None]
  - PULMONARY ARTERY ANEURYSM [None]
  - PHLEBITIS [None]
